FAERS Safety Report 15076966 (Version 1)
Quarter: 2018Q2

REPORT INFORMATION
  Report Type: Spontaneous
  Country: FR (occurrence: FR)
  Receive Date: 20180627
  Receipt Date: 20180627
  Transmission Date: 20180711
  Serious: Yes (Hospitalization)
  Sender: FDA-Public Use
  Company Number: FR-PFIZER INC-2018256041

PATIENT
  Age: 75 Year
  Sex: Male

DRUGS (16)
  1. ZOPHREN [Interacting]
     Active Substance: ONDANSETRON
     Indication: VOMITING
     Dosage: UNK
     Route: 042
     Dates: start: 20170719, end: 20170919
  2. ETOPOSIDE MYLAN [Suspect]
     Active Substance: ETOPOSIDE
     Indication: LYMPHOMA
     Dosage: 131 MG, CYCLIC
     Route: 042
     Dates: start: 20170717, end: 20170920
  3. TRUXIMA [Suspect]
     Active Substance: RITUXIMAB
     Indication: LYMPHOMA
     Dosage: 690 MG AND 660 MG PER CYCLE
     Route: 042
     Dates: start: 20170717, end: 20170918
  4. HYDROCORTISONE. [Concomitant]
     Active Substance: HYDROCORTISONE
  5. KEPPRA [Concomitant]
     Active Substance: LEVETIRACETAM
     Dosage: 500 MG, 2X/DAY
  6. TAMSULOSIN [Concomitant]
     Active Substance: TAMSULOSIN
  7. LOVENOX [Concomitant]
     Active Substance: ENOXAPARIN SODIUM
  8. CARBOPLATINE HOSPIRA [Suspect]
     Active Substance: CARBOPLATIN
     Indication: LYMPHOMA
     Dosage: 365 MG AND 380 MG PPER CYCLE
     Route: 042
     Dates: start: 20170718, end: 20170919
  9. IFOSFAMIDE EG [Suspect]
     Active Substance: IFOSFAMIDE
     Indication: LYMPHOMA
     Dosage: 6600 MG, CYCLIC
     Route: 042
     Dates: start: 20170719, end: 20170919
  10. AMLOR [Concomitant]
     Active Substance: AMLODIPINE BESYLATE
  11. PROZAC [Concomitant]
     Active Substance: FLUOXETINE HYDROCHLORIDE
  12. MACROGOL [Concomitant]
     Active Substance: POLYETHYLENE GLYCOLS
  13. CALCIDOSE [Concomitant]
     Active Substance: CALCIUM CARBONATE
  14. UROMITEXAN [Suspect]
     Active Substance: MESNA
     Indication: LYMPHOMA
     Dosage: UNK
     Route: 042
     Dates: start: 20170719, end: 20170919
  15. BACTRIM [Concomitant]
     Active Substance: SULFAMETHOXAZOLE\TRIMETHOPRIM
  16. VALACICLOVIR [Concomitant]
     Active Substance: VALACYCLOVIR HYDROCHLORIDE

REACTIONS (2)
  - Drug interaction [Recovered/Resolved]
  - Encephalopathy [Recovered/Resolved]

NARRATIVE: CASE EVENT DATE: 20170719
